FAERS Safety Report 17108663 (Version 10)
Quarter: 2020Q3

REPORT INFORMATION
  Report Type: Report from Study
  Country: US (occurrence: US)
  Receive Date: 20191203
  Receipt Date: 20200729
  Transmission Date: 20201102
  Serious: Yes (Other)
  Sender: FDA-Public Use
  Company Number: NVSC2019US057065

PATIENT
  Age: 55 Year
  Sex: Male

DRUGS (4)
  1. ENTRESTO [Suspect]
     Active Substance: SACUBITRIL\VALSARTAN
     Indication: CARDIAC FAILURE CHRONIC
     Dosage: 49 MG, BID
     Route: 048
     Dates: start: 201910
  2. ENTRESTO [Suspect]
     Active Substance: SACUBITRIL\VALSARTAN
     Dosage: UNK
     Route: 065
     Dates: start: 201911
  3. CARVEDILOL. [Suspect]
     Active Substance: CARVEDILOL
     Indication: PRODUCT USED FOR UNKNOWN INDICATION
     Dosage: UNK UNK, UNKNOWN
     Route: 065
  4. ATORVASTATIN [Suspect]
     Active Substance: ATORVASTATIN
     Indication: PRODUCT USED FOR UNKNOWN INDICATION
     Dosage: UNK
     Route: 065

REACTIONS (33)
  - Hypotension [Not Recovered/Not Resolved]
  - Dizziness [Not Recovered/Not Resolved]
  - Feeling abnormal [Recovering/Resolving]
  - Therapeutic product effect incomplete [Not Recovered/Not Resolved]
  - Eczema [Unknown]
  - Rhinorrhoea [Not Recovered/Not Resolved]
  - Throat clearing [Unknown]
  - Scar [Unknown]
  - Blood potassium decreased [Recovering/Resolving]
  - Throat irritation [Unknown]
  - Sneezing [Not Recovered/Not Resolved]
  - Appetite disorder [Unknown]
  - Hypersensitivity [Unknown]
  - Patient dissatisfaction with treatment [Unknown]
  - Nasopharyngitis [Not Recovered/Not Resolved]
  - Paranoia [Unknown]
  - Pruritus [Unknown]
  - Dyspnoea [Not Recovered/Not Resolved]
  - Dysphonia [Not Recovered/Not Resolved]
  - Back pain [Unknown]
  - Complication associated with device [Unknown]
  - Cough [Not Recovered/Not Resolved]
  - Dermatitis atopic [Unknown]
  - Chronic sinusitis [Not Recovered/Not Resolved]
  - Ejection fraction decreased [Not Recovered/Not Resolved]
  - Weight increased [Not Recovered/Not Resolved]
  - Pain [Unknown]
  - Nervousness [Unknown]
  - Swelling [Recovering/Resolving]
  - Atrial fibrillation [Unknown]
  - Blood cholesterol increased [Not Recovered/Not Resolved]
  - Memory impairment [Unknown]
  - Blood potassium increased [Recovering/Resolving]

NARRATIVE: CASE EVENT DATE: 201910
